FAERS Safety Report 7451876 (Version 5)
Quarter: 2013Q3

REPORT INFORMATION
  Report Type: Report from Study
  Country: JP (occurrence: JP)
  Receive Date: 20100702
  Receipt Date: 20130722
  Transmission Date: 20140515
  Serious: Yes (Hospitalization, Other)
  Sender: FDA-Public Use
  Company Number: PHHY2010JP41382

PATIENT
  Age: 22 Year
  Sex: Female

DRUGS (44)
  1. NEORAL [Suspect]
     Indication: HEART TRANSPLANT
     Dosage: 1 MG TO 100 MG
     Route: 048
     Dates: start: 20070820, end: 20070831
  2. NEORAL [Suspect]
     Dosage: 150-200MG/DAY
     Route: 048
     Dates: start: 20071015, end: 20080305
  3. NEORAL [Suspect]
     Dosage: 100 MG TO 150 MG DAILY
     Route: 048
     Dates: start: 20080305
  4. NEORAL [Suspect]
     Dosage: 100 MG, UNK
     Route: 048
     Dates: start: 20091021, end: 20100415
  5. SANDIMMUN [Suspect]
     Indication: HEART TRANSPLANT
     Dosage: 50 MG
     Route: 042
  6. CERTICAN [Suspect]
     Indication: PROPHYLAXIS AGAINST TRANSPLANT REJECTION
     Dosage: 1.5 MG, UNK
     Route: 048
  7. CERTICAN [Suspect]
     Dosage: 0.5 MG, UNK
     Route: 048
  8. CERTICAN [Suspect]
     Dosage: 1 MG, UNK
     Route: 048
  9. CERTICAN [Suspect]
     Dosage: 1.5 MG, UNK
     Route: 048
  10. CERTICAN [Suspect]
     Dosage: 2 MG, UNK
     Route: 048
  11. CERTICAN [Suspect]
     Dosage: 1.75 MG, UNK
     Route: 048
  12. CERTICAN [Suspect]
     Dosage: 1.5 MG, UNK
     Route: 048
  13. CERTICAN [Suspect]
     Dosage: 1.75 MG, UNK
     Route: 048
  14. CERTICAN [Suspect]
     Dosage: 1.5 MG, UNK
     Route: 048
  15. MYCOPHENOLATE MOFETIL [Concomitant]
     Indication: HEART TRANSPLANT
     Dosage: 2.5 MG, UNK
     Route: 048
     Dates: start: 20070820
  16. MYCOPHENOLATE MOFETIL [Concomitant]
     Dosage: 1.5 MG,
     Dates: start: 20100825
  17. MYCOPHENOLATE MOFETIL [Concomitant]
     Dosage: 1000 MG, UNK
     Route: 048
  18. MYCOPHENOLATE MOFETIL [Concomitant]
     Dosage: 1250 MG, UNK
     Route: 048
  19. MEVALOTIN [Concomitant]
     Dosage: 10 MG, UNK
     Route: 048
     Dates: start: 20070820
  20. MEVALOTIN [Concomitant]
     Dosage: 20 MG, UNK
     Route: 048
  21. MEVALOTIN [Concomitant]
     Dosage: 10 MG, UNK
     Route: 048
  22. GASTER [Concomitant]
     Dosage: 20 MG, UNK
     Route: 048
  23. ARTIST [Concomitant]
     Dosage: 10 MG, UNK
     Route: 048
     Dates: start: 20091021
  24. RENIVACE [Concomitant]
     Dosage: 2.5 MG, UNK
     Route: 048
     Dates: start: 20071021
  25. BAKTAR [Concomitant]
     Dosage: 1 DF, UNK
     Route: 048
     Dates: start: 20070820, end: 20090114
  26. DIFLUCAN [Concomitant]
     Dosage: 100 MG, UNK
     Route: 048
     Dates: start: 20071010, end: 20080305
  27. PROGRAF [Concomitant]
     Indication: HEART TRANSPLANT
     Dosage: 4 MG, UNK
     Route: 048
     Dates: start: 20100415
  28. PROGRAF [Concomitant]
     Dosage: 3 MG, UNK
     Route: 048
  29. PROGRAF [Concomitant]
     Dosage: 2 MG, UNK
     Route: 048
  30. PROGRAF [Concomitant]
     Dosage: 2.5 MG, UNK
     Route: 048
  31. PROGRAF [Concomitant]
     Dosage: 3 MG, UNK
     Route: 048
  32. PROGRAF [Concomitant]
     Dosage: 3.4 MG, UNK
     Route: 048
  33. PROGRAF [Concomitant]
     Dosage: 3 MG, UNK
     Route: 048
  34. PROGRAF [Concomitant]
     Dosage: 2.4 MG, UNK
     Route: 048
  35. PROGRAF [Concomitant]
     Dosage: 2.2 MG, UNK
     Route: 048
  36. PROGRAF [Concomitant]
     Dosage: 2.4 MG, UNK
     Route: 048
  37. PROGRAF [Concomitant]
     Dosage: 2.2 MG, UNK
     Route: 048
  38. ADRENALINE [Concomitant]
     Indication: HEART TRANSPLANT
     Dosage: 60 MG, UNK
     Route: 048
     Dates: start: 20070820
  39. PREDNISOLONE [Concomitant]
     Indication: HEART TRANSPLANT
     Dosage: 4 MG, UNK
     Route: 048
     Dates: start: 20091021
  40. PREDNISOLONE [Concomitant]
     Dosage: 20 MG, UNK
     Route: 048
  41. PREDNISOLONE [Concomitant]
     Dosage: 15 MG, UNK
     Route: 048
  42. PREDNISOLONE [Concomitant]
     Dosage: 10 MG, UNK
     Route: 048
     Dates: start: 20091021, end: 20100825
  43. TAKEPRON [Concomitant]
     Dosage: 30 MG, UNK
     Route: 048
     Dates: start: 20091021
  44. ALDACTONE-A [Concomitant]
     Dosage: 75 MG, UNK
     Route: 048
     Dates: start: 201007

REACTIONS (4)
  - Mediastinitis [Recovering/Resolving]
  - Staphylococcal infection [Unknown]
  - Coronary artery disease [Unknown]
  - Heart transplant rejection [Recovered/Resolved]
